FAERS Safety Report 9699205 (Version 1)
Quarter: 2013Q4

REPORT INFORMATION
  Report Type: Spontaneous
  Country: BR (occurrence: BR)
  Receive Date: 20131120
  Receipt Date: 20131120
  Transmission Date: 20140711
  Serious: Yes (Other)
  Sender: FDA-Public Use
  Company Number: BR-IPSEN BIOPHARMACEUTICALS, INC.-2013-5082

PATIENT
  Age: 60 Year
  Sex: Female

DRUGS (3)
  1. DYSPORT [Suspect]
     Indication: SKIN WRINKLING
     Dosage: 144 U
     Route: 030
     Dates: start: 201310, end: 201310
  2. DYSPORT [Suspect]
     Indication: SKIN WRINKLING
  3. DYSPORT [Suspect]
     Indication: OFF LABEL USE

REACTIONS (4)
  - Angioedema [Unknown]
  - Urticaria [Unknown]
  - Overdose [Unknown]
  - Wrong technique in drug usage process [Unknown]
